FAERS Safety Report 14010361 (Version 1)
Quarter: 2017Q3

REPORT INFORMATION
  Report Type: Spontaneous
  Country: US (occurrence: US)
  Receive Date: 20170926
  Receipt Date: 20170926
  Transmission Date: 20171128
  Serious: No
  Sender: FDA-Public Use
  Company Number: US-ASTRAZENECA-2017SE96117

PATIENT
  Sex: Male
  Weight: 72.6 kg

DRUGS (1)
  1. MOVANTIK [Suspect]
     Active Substance: NALOXEGOL OXALATE
     Indication: CONSTIPATION
     Dosage: 25.0MG AS REQUIRED
     Route: 048

REACTIONS (3)
  - Abdominal discomfort [Unknown]
  - Intentional product misuse [Unknown]
  - Drug ineffective [Unknown]
